FAERS Safety Report 21222625 (Version 1)
Quarter: 2022Q3

REPORT INFORMATION
  Report Type: Spontaneous
  Country: US (occurrence: US)
  Receive Date: 20220817
  Receipt Date: 20220817
  Transmission Date: 20221027
  Serious: No
  Sender: FDA-Public Use
  Company Number: US-BRISTOL-MYERS SQUIBB COMPANY-2022-091179

PATIENT
  Age: 65 Year

DRUGS (3)
  1. REVLIMID [Suspect]
     Active Substance: LENALIDOMIDE
     Indication: Plasma cell myeloma
     Dosage: REVLIMID CAP 25MG, 1 CAP DAILY FOR21 DAYS THEN 7 DAYS OFF
     Route: 048
     Dates: start: 202208
  2. REVLIMID [Suspect]
     Active Substance: LENALIDOMIDE
     Dosage: TAKES FOR 14 DAYS THEN 7 DAYS OFF
     Route: 048
  3. VELCADE [Concomitant]
     Active Substance: BORTEZOMIB
     Indication: Product used for unknown indication
     Route: 065

REACTIONS (1)
  - Off label use [Unknown]

NARRATIVE: CASE EVENT DATE: 20220816
